FAERS Safety Report 4705780-3 (Version None)
Quarter: 2005Q2

REPORT INFORMATION
  Report Type: 
  Country: None (occurrence: None)
  Receive Date: 20050629
  Receipt Date: 20050622
  Transmission Date: 20051028
  Serious: Yes (Hospitalization)
  Sender: FDA-Public Use
  Company Number: 8008551

PATIENT
  Age: 21 Year
  Sex: Female

DRUGS (3)
  1. KEPPRA [Suspect]
     Indication: EPILEPSY
     Dosage: 125 MG 2/D PO
     Route: 048
     Dates: start: 20050109, end: 20050101
  2. KEPPRA [Suspect]
     Indication: EPILEPSY
     Dosage: 250 MG 2/D PO
     Route: 048
     Dates: start: 20050101, end: 20050117
  3. DOLIPRANE [Concomitant]

REACTIONS (11)
  - CONVULSION [None]
  - CYTOLYTIC HEPATITIS [None]
  - DRUG ERUPTION [None]
  - HEART RATE INCREASED [None]
  - HEPATIC LESION [None]
  - MENTAL DISORDER [None]
  - MICROCYTIC ANAEMIA [None]
  - POSTICTAL STATE [None]
  - RASH MACULO-PAPULAR [None]
  - TOXIC SKIN ERUPTION [None]
  - UNEVALUABLE EVENT [None]
